FAERS Safety Report 5449893-X (Version None)
Quarter: 2007Q3

REPORT INFORMATION
  Report Type: 
  Country: None (occurrence: None)
  Receive Date: 20070907
  Receipt Date: 20070824
  Transmission Date: 20080115
  Serious: Yes (Life-Threatening, Hospitalization)
  Sender: FDA-Public Use
  Company Number: WAES 0707USA03813

PATIENT
  Age: 63 Year
  Sex: Male
  Weight: 116.5744 kg

DRUGS (7)
  1. CAP VORINOSTAT UNK [Suspect]
     Indication: BLADDER CANCER
     Dosage: 200 MG/DAILY/PO
     Route: 048
     Dates: start: 20070709, end: 20070723
  2. CAP VORINOSTAT UNK [Suspect]
     Indication: METASTASIS
     Dosage: 200 MG/DAILY/PO
     Route: 048
     Dates: start: 20070709, end: 20070723
  3. DOCETAXEL [Suspect]
     Indication: BLADDER CANCER
     Dosage: 75 MG/DAILY/IV
     Route: 042
     Dates: start: 20070713, end: 20070713
  4. DOCETAXEL [Suspect]
     Indication: METASTASIS
     Dosage: 75 MG/DAILY/IV
     Route: 042
     Dates: start: 20070713, end: 20070713
  5. FLOMAX (MORNIFLUMATE) [Concomitant]
  6. PRINIVIL [Concomitant]
  7. PYRIDOXINE HCL [Concomitant]

REACTIONS (14)
  - ATRIAL FIBRILLATION [None]
  - ESCHERICHIA URINARY TRACT INFECTION [None]
  - HYPERKALAEMIA [None]
  - HYPOCALCAEMIA [None]
  - HYPOTENSION [None]
  - METABOLIC ACIDOSIS [None]
  - NEUTROPENIC SEPSIS [None]
  - PLEURAL EFFUSION [None]
  - PSEUDOMONAS INFECTION [None]
  - RESPIRATORY ACIDOSIS [None]
  - RESPIRATORY FAILURE [None]
  - SEPTIC SHOCK [None]
  - SPUTUM CULTURE POSITIVE [None]
  - THROMBOCYTOPENIA [None]
